FAERS Safety Report 12885939 (Version 1)
Quarter: 2016Q4

REPORT INFORMATION
  Report Type: Spontaneous
  Country: US (occurrence: US)
  Receive Date: 20161026
  Receipt Date: 20161026
  Transmission Date: 20170207
  Serious: Yes (Hospitalization)
  Sender: FDA-Public Use
  Company Number: None

PATIENT
  Age: 73 Year
  Sex: Male
  Weight: 134.5 kg

DRUGS (7)
  1. VITAMIN B12 [Concomitant]
     Active Substance: CYANOCOBALAMIN
  2. PRAVACHOL [Concomitant]
     Active Substance: PRAVASTATIN SODIUM
  3. ANTIVERT [Concomitant]
     Active Substance: MECLIZINE HYDROCHLORIDE
  4. INVOKANA [Suspect]
     Active Substance: CANAGLIFLOZIN
     Indication: DIABETES MELLITUS
     Dosage: RECENT
  5. COZAAR [Concomitant]
     Active Substance: LOSARTAN POTASSIUM
  6. COREG [Concomitant]
     Active Substance: CARVEDILOL
  7. ALTACE [Concomitant]
     Active Substance: RAMIPRIL

REACTIONS (4)
  - Orthostatic intolerance [None]
  - Dizziness [None]
  - Arrhythmia [None]
  - Dehydration [None]

NARRATIVE: CASE EVENT DATE: 20150725
